FAERS Safety Report 4399565-8 (Version None)
Quarter: 2004Q3

REPORT INFORMATION
  Report Type: 
  Country: None (occurrence: None)
  Receive Date: 20040716
  Receipt Date: 20040705
  Transmission Date: 20050211
  Serious: Yes (Congenital Anomaly)
  Sender: FDA-Public Use
  Company Number: NL-GLAXOSMITHKLINE-B0338828A

PATIENT
  Sex: Male

DRUGS (6)
  1. LAMIVUDINE [Suspect]
     Dates: start: 20031001
  2. ZIDOVUDINE [Suspect]
  3. LOPINAVIR + RITONAVIR [Suspect]
     Dates: start: 20030908
  4. VIRAMUNE [Concomitant]
     Dates: start: 20021001
  5. VIRACEPT [Concomitant]
     Dates: start: 20031001
  6. VIREAD [Concomitant]
     Dates: start: 20030908

REACTIONS (4)
  - CONGENITAL CYSTIC LUNG [None]
  - DRUG EXPOSURE DURING PREGNANCY [None]
  - MULTIPLE CONGENITAL ABNORMALITIES [None]
  - PULMONARY MALFORMATION [None]
